FAERS Safety Report 5492661-3 (Version None)
Quarter: 2007Q4

REPORT INFORMATION
  Report Type: 
  Country: None (occurrence: None)
  Receive Date: 20071022
  Receipt Date: 20071010
  Transmission Date: 20080405
  Serious: Yes (Other)
  Sender: FDA-Public Use
  Company Number: JP-PFIZER INC-2007086875

PATIENT
  Age: 73 Year
  Sex: Male

DRUGS (1)
  1. SULPERAZON [Suspect]
     Indication: BILIARY TRACT INFECTION
     Route: 042

REACTIONS (1)
  - ANAPHYLACTIC SHOCK [None]
